FAERS Safety Report 25662214 (Version 2)
Quarter: 2025Q4

REPORT INFORMATION
  Report Type: Spontaneous
  Country: JP (occurrence: JP)
  Receive Date: 20250810
  Receipt Date: 20251005
  Transmission Date: 20260117
  Serious: Yes (Death, Hospitalization)
  Sender: JOHNSON AND JOHNSON
  Company Number: JP-JNJFOC-20250807473

PATIENT
  Age: 6 Decade
  Sex: Female

DRUGS (1)
  1. OPSUMIT [Suspect]
     Active Substance: MACITENTAN
     Indication: Pulmonary arterial hypertension
     Route: 048
     Dates: start: 201908

REACTIONS (2)
  - Pulmonary arterial hypertension [Fatal]
  - Cardiac failure [Recovered/Resolved]

NARRATIVE: CASE EVENT DATE: 20210301
